FAERS Safety Report 11058460 (Version 1)
Quarter: 2015Q2

REPORT INFORMATION
  Report Type: Report from Study
  Country: US (occurrence: None)
  Receive Date: 20150420
  Receipt Date: 20150420
  Transmission Date: 20150821
  Serious: No
  Sender: FDA-Public Use
  Company Number: AEGR001122

PATIENT
  Age: 50 Year
  Sex: Female
  Weight: 64.4 kg

DRUGS (6)
  1. ATORVASTATIN (ATORVASTATIN CALCIUM) [Concomitant]
  2. JUXTAPID [Suspect]
     Active Substance: LOMITAPIDE MESYLATE
     Indication: TYPE IIA HYPERLIPIDAEMIA
     Route: 048
     Dates: start: 20150112
  3. ZOLOFT [Concomitant]
     Active Substance: SERTRALINE HYDROCHLORIDE
  4. ZETIA [Concomitant]
     Active Substance: EZETIMIBE
  5. LEVOTHYROXINE [Concomitant]
     Active Substance: LEVOTHYROXINE
  6. ATIVAN [Concomitant]
     Active Substance: LORAZEPAM

REACTIONS (4)
  - Anxiety [None]
  - Diarrhoea [None]
  - Nausea [None]
  - Stress [None]

NARRATIVE: CASE EVENT DATE: 20150113
